FAERS Safety Report 17880943 (Version 1)
Quarter: 2020Q2

REPORT INFORMATION
  Report Type: Spontaneous
  Country: US (occurrence: US)
  Receive Date: 20200610
  Receipt Date: 20200610
  Transmission Date: 20200714
  Serious: No
  Sender: FDA-Public Use
  Company Number: US-ENDO PHARMACEUTICALS INC-2019-108970

PATIENT
  Sex: Female

DRUGS (1)
  1. SUPPRELIN LA [Suspect]
     Active Substance: HISTRELIN ACETATE
     Indication: PRECOCIOUS PUBERTY
     Dosage: 50 MG, ONCE A YEAR
     Route: 058

REACTIONS (4)
  - Weight increased [Unknown]
  - Headache [Unknown]
  - Goitre [Unknown]
  - Cyst [Unknown]

NARRATIVE: CASE EVENT DATE: 2018
